FAERS Safety Report 8823859 (Version 1)
Quarter: 2012Q4

REPORT INFORMATION
  Report Type: 
  Country: US (occurrence: US)
  Receive Date: 20121003
  Receipt Date: 20121003
  Transmission Date: 20130627
  Serious: Yes (Life-Threatening, Hospitalization, Other)
  Sender: FDA-Public Use
  Company Number: US-MERCK-1210USA000800

PATIENT
  Age: 56 Year
  Sex: Male

DRUGS (1)
  1. JANUVIA [Suspect]
     Dosage: 1 DF, qd
     Route: 048

REACTIONS (3)
  - Pancreatitis [Unknown]
  - Early retirement [Unknown]
  - Impaired work ability [Unknown]
